FAERS Safety Report 19378705 (Version 1)
Quarter: 2021Q2

REPORT INFORMATION
  Report Type: Spontaneous
  Country: US (occurrence: US)
  Receive Date: 20210606
  Receipt Date: 20210606
  Transmission Date: 20210717
  Serious: No
  Sender: FDA-Public Use
  Company Number: US-SA-2021SA184177

PATIENT
  Age: 20 Year
  Sex: Female

DRUGS (2)
  1. DUPIXENT [Suspect]
     Active Substance: DUPILUMAB
     Indication: ASTHMA
     Dosage: INJECT 2 SYRINGE SUBCUTANEOUSLY ON DAY 1
     Route: 058
     Dates: start: 20210421, end: 20210421
  2. DUPIXENT [Suspect]
     Active Substance: DUPILUMAB
     Indication: NASAL POLYPS
     Dosage: INJECT 1 SYRINGE ON DAY 15 THEN 1 SYRINGE EVERY OTHER WEEK THEREAFTER
     Route: 058
     Dates: start: 20210506

REACTIONS (1)
  - Drug ineffective [Unknown]

NARRATIVE: CASE EVENT DATE: 2021
